FAERS Safety Report 6403908-0 (Version None)
Quarter: 2009Q4

REPORT INFORMATION
  Report Type: 
  Country: None (occurrence: None)
  Receive Date: 20091016
  Receipt Date: 20090723
  Transmission Date: 20100525
  Serious: No
  Sender: FDA-Public Use
  Company Number: US-ALEXION-A200900597

PATIENT
  Sex: Male
  Weight: 107 kg

DRUGS (9)
  1. SOLIRIS [Suspect]
     Indication: PAROXYSMAL NOCTURNAL HAEMOGLOBINURIA
     Dosage: 600 MG, QW X4
     Route: 042
     Dates: start: 20070420
  2. SOLIRIS [Suspect]
     Dosage: 900 MG, Q2W
     Route: 042
  3. OMEPRAZOLE [Concomitant]
     Dosage: 20 MG, QD
     Route: 048
  4. NORVASC [Concomitant]
     Dosage: 5 MG, QD
     Route: 048
  5. ASPIRIN [Concomitant]
     Dosage: 81 MG, QD
     Route: 048
  6. ZYRTEC [Concomitant]
     Dosage: 10 MG, QD
     Route: 048
  7. ASTELIN [Concomitant]
     Dosage: 2 PUFFS PER NOSTRIL, BID
     Route: 045
  8. CIALIS [Concomitant]
     Dosage: 20 MG, PRN
     Route: 048
  9. METHYLPREDNISOLONE [Concomitant]
     Dosage: PRN

REACTIONS (1)
  - BRONCHITIS [None]
